FAERS Safety Report 7991552-3 (Version None)
Quarter: 2011Q4

REPORT INFORMATION
  Report Type: 
  Country: None (occurrence: None)
  Receive Date: 20111219
  Receipt Date: 20111215
  Transmission Date: 20120403
  Serious: Yes (Other)
  Sender: FDA-Public Use
  Company Number: GB-PFIZER INC-2011306110

PATIENT
  Age: 47 Year
  Sex: Male
  Weight: 77 kg

DRUGS (1)
  1. VARENICLINE TARTRATE [Suspect]
     Indication: SMOKING CESSATION THERAPY
     Dosage: 1 MG, 2X/DAY
     Route: 048
     Dates: start: 20111103, end: 20111201

REACTIONS (7)
  - CHEST DISCOMFORT [None]
  - PANIC REACTION [None]
  - ANXIETY [None]
  - PARANOIA [None]
  - IMPAIRED DRIVING ABILITY [None]
  - INSOMNIA [None]
  - TACHYPHRENIA [None]
